FAERS Safety Report 24803048 (Version 1)
Quarter: 2025Q1

REPORT INFORMATION
  Report Type: Spontaneous
  Country: PT (occurrence: PT)
  Receive Date: 20250103
  Receipt Date: 20250103
  Transmission Date: 20250409
  Serious: Yes (Hospitalization, Other)
  Sender: Unknown Manufacturer
  Company Number: PT-862174955-ML2024-06848

PATIENT
  Age: 33 Year
  Sex: Female

DRUGS (4)
  1. MISOPROSTOL [Suspect]
     Active Substance: MISOPROSTOL
     Indication: Uterine atony
     Route: 054
  2. MISOPROSTOL [Suspect]
     Active Substance: MISOPROSTOL
     Indication: Haemorrhage
  3. OXYTOCIN [Concomitant]
     Active Substance: OXYTOCIN
     Indication: Uterine atony
  4. OXYTOCIN [Concomitant]
     Active Substance: OXYTOCIN
     Indication: Prophylaxis

REACTIONS (2)
  - Hyperthermia malignant [Recovered/Resolved]
  - Delirium [Recovered/Resolved]
